FAERS Safety Report 17055774 (Version 1)
Quarter: 2019Q4

REPORT INFORMATION
  Report Type: Spontaneous
  Country: CN (occurrence: CN)
  Receive Date: 20191120
  Receipt Date: 20191120
  Transmission Date: 20200122
  Serious: Yes (Life-Threatening, Hospitalization)
  Sender: FDA-Public Use
  Company Number: CN-BAXTER-2019BAX023190

PATIENT
  Age: 7 Year
  Sex: Male
  Weight: 24.2 kg

DRUGS (20)
  1. ONDANSETRON HYDROCHLORIDE. [Suspect]
     Active Substance: ONDANSETRON HYDROCHLORIDE
     Dosage: DOSE RE-INTRODUCED
     Route: 042
  2. HOLOXAN [Suspect]
     Active Substance: IFOSFAMIDE
     Dosage: COURSE 2, IFOSFAMIDE 1638 MG + 0.9% NS 77 ML
     Route: 041
     Dates: start: 20191009, end: 20191013
  3. 0.9% SODIUM CHLORIDE INJECTION [Suspect]
     Active Substance: SODIUM CHLORIDE
     Indication: MEDICATION DILUTION
     Dosage: COURSE 1, IFOSFAMIDE + 0.9% NS
     Route: 041
  4. 0.9% SODIUM CHLORIDE INJECTION [Suspect]
     Active Substance: SODIUM CHLORIDE
     Dosage: COURSE 2, IFOSFAMIDE 1638 MG + 0.9% NS 77 ML, RATE: 77 ML/H
     Route: 041
     Dates: start: 20191009, end: 20191013
  5. 0.9% SODIUM CHLORIDE INJECTION [Suspect]
     Active Substance: SODIUM CHLORIDE
     Route: 041
     Dates: start: 20191009, end: 20191013
  6. ETOPOSIDE. [Suspect]
     Active Substance: ETOPOSIDE
     Dosage: COURSE 2, ETOPOSIDE INJECTION 137 MG + NS 550 ML
     Route: 041
     Dates: start: 20191009, end: 20191011
  7. 0.9% SODIUM CHLORIDE INJECTION [Suspect]
     Active Substance: SODIUM CHLORIDE
     Dosage: COURSE 2, ETOPOSIDE INJECTION 137 MG + 0.9% NS
     Route: 041
     Dates: start: 20191009, end: 20191011
  8. MESNA. [Suspect]
     Active Substance: MESNA
     Indication: PROPHYLAXIS
     Route: 042
     Dates: start: 20191009, end: 20191013
  9. 0.9% SODIUM CHLORIDE INJECTION [Suspect]
     Active Substance: SODIUM CHLORIDE
     Dosage: DOSE RE-INTRODUCED
     Route: 041
  10. SODIUM CHLORIDE. [Suspect]
     Active Substance: SODIUM CHLORIDE
     Dosage: DOSE RE-INTRODUCED
     Route: 042
  11. MESNA. [Suspect]
     Active Substance: MESNA
     Dosage: DOSE RE-INTRODUCED
     Route: 042
  12. HOLOXAN [Suspect]
     Active Substance: IFOSFAMIDE
     Indication: GERM CELL CANCER
     Dosage: COURSE 1, IFOSFAMIDE + 0.9% NS
     Route: 041
  13. 0.9% SODIUM CHLORIDE INJECTION [Suspect]
     Active Substance: SODIUM CHLORIDE
     Dosage: COURSE 1, ETOPOSIDE INJECTION + 0.9% NS
     Route: 041
  14. ETOPOSIDE. [Suspect]
     Active Substance: ETOPOSIDE
     Dosage: DOSE RE-INTRODUCTION, ETOPOSIDE INJECTION + NS
     Route: 041
  15. SODIUM CHLORIDE. [Suspect]
     Active Substance: SODIUM CHLORIDE
     Indication: MEDICATION DILUTION
     Route: 042
     Dates: start: 20191009, end: 20191013
  16. ETOPOSIDE. [Suspect]
     Active Substance: ETOPOSIDE
     Indication: GERM CELL CANCER
     Dosage: COURSE 1, ETOPOSIDE INJECTION + NS
     Route: 041
  17. ONDANSETRON HYDROCHLORIDE. [Suspect]
     Active Substance: ONDANSETRON HYDROCHLORIDE
     Indication: PROPHYLAXIS OF NAUSEA AND VOMITING
     Route: 042
     Dates: start: 20191009, end: 20191013
  18. HOLOXAN [Suspect]
     Active Substance: IFOSFAMIDE
     Dosage: DOSE RE-INTRODUCED, IFOSFAMIDE + 0.9% NS
     Route: 041
  19. 0.9% SODIUM CHLORIDE INJECTION [Suspect]
     Active Substance: SODIUM CHLORIDE
     Dosage: DOSE RE-INTRODUCED, IFOSFAMIDE + 0.9% NS
     Route: 041
  20. 0.9% SODIUM CHLORIDE INJECTION [Suspect]
     Active Substance: SODIUM CHLORIDE
     Dosage: DOSE RE-INTRODUCTION, ETOPOSIDE INJECTION + 0.9% NS
     Route: 041

REACTIONS (2)
  - Neutropenia [Recovering/Resolving]
  - Leukopenia [Recovering/Resolving]

NARRATIVE: CASE EVENT DATE: 20191107
